FAERS Safety Report 17303379 (Version 1)
Quarter: 2020Q1

REPORT INFORMATION
  Report Type: Spontaneous
  Country: AU (occurrence: AU)
  Receive Date: 20200122
  Receipt Date: 20200122
  Transmission Date: 20200409
  Serious: Yes (Other)
  Sender: FDA-Public Use
  Company Number: AU-GE HEALTHCARE-VISP-PR-1305S-0634

PATIENT

DRUGS (5)
  1. VISIPAQUE [Suspect]
     Active Substance: IODIXANOL
     Indication: NERVOUS SYSTEM DISORDER
  2. VISIPAQUE [Suspect]
     Active Substance: IODIXANOL
     Indication: ARTERIOGRAM CAROTID
     Dosage: 90 ML, SINGLE
     Route: 042
     Dates: start: 20111108, end: 20111108
  3. VISIPAQUE [Suspect]
     Active Substance: IODIXANOL
     Indication: COMPUTERISED TOMOGRAM
  4. VISIPAQUE [Suspect]
     Active Substance: IODIXANOL
     Indication: MUSCULAR WEAKNESS
  5. VISIPAQUE [Suspect]
     Active Substance: IODIXANOL
     Indication: VERTEBROBASILAR INSUFFICIENCY

REACTIONS (3)
  - Staphylococcal skin infection [Not Recovered/Not Resolved]
  - Dermatitis [Not Recovered/Not Resolved]
  - Pleurisy [Unknown]

NARRATIVE: CASE EVENT DATE: 20111110
